FAERS Safety Report 11244834 (Version 4)
Quarter: 2017Q1

REPORT INFORMATION
  Report Type: Spontaneous
  Country: US (occurrence: US)
  Receive Date: 20150707
  Receipt Date: 20170210
  Transmission Date: 20170428
  Serious: Yes (Other)
  Sender: FDA-Public Use
  Company Number: US-SA-2015SA091991

PATIENT
  Age: 19 Year
  Sex: Male
  Weight: 111.8 kg

DRUGS (20)
  1. DEXAMETHASONE. [Suspect]
     Active Substance: DEXAMETHASONE
     Indication: ACUTE LYMPHOCYTIC LEUKAEMIA
     Route: 042
     Dates: start: 20150219, end: 20150222
  2. FLUDARABINE PHOSPHATE. [Suspect]
     Active Substance: FLUDARABINE PHOSPHATE
     Dosage: DAY :1-6
     Route: 042
     Dates: start: 20150409, end: 20150412
  3. CYTARABINE. [Suspect]
     Active Substance: CYTARABINE
     Indication: ACUTE LYMPHOCYTIC LEUKAEMIA
     Route: 065
     Dates: start: 20150310, end: 20150310
  4. INOTUZUMAB OZOGAMICIN [Suspect]
     Active Substance: INOTUZUMAB OZOGAMICIN
     Indication: ACUTE LYMPHOCYTIC LEUKAEMIA
     Dosage: DAY:3
     Route: 042
     Dates: start: 20150306, end: 20150306
  5. MESNA. [Suspect]
     Active Substance: MESNA
     Indication: ACUTE LYMPHOCYTIC LEUKAEMIA
     Route: 042
     Dates: start: 20150209, end: 20150211
  6. VINCRISTINE [Suspect]
     Active Substance: VINCRISTINE
     Indication: ACUTE LYMPHOCYTIC LEUKAEMIA
     Route: 042
     Dates: start: 20150209, end: 20150209
  7. CYTARABINE. [Suspect]
     Active Substance: CYTARABINE
     Indication: ACUTE LYMPHOCYTIC LEUKAEMIA
     Route: 037
     Dates: start: 20150216, end: 20150216
  8. BUSULFAN. [Suspect]
     Active Substance: BUSULFAN
     Route: 042
     Dates: start: 20150409, end: 20150412
  9. METHOTREXATE. [Suspect]
     Active Substance: METHOTREXATE
     Indication: ACUTE LYMPHOCYTIC LEUKAEMIA
     Route: 037
     Dates: start: 20150210, end: 20150210
  10. VORINOSTAT [Suspect]
     Active Substance: VORINOSTAT
     Dosage: DAY:1-6
     Route: 042
     Dates: start: 20150409, end: 20150412
  11. CLOFARABINE [Suspect]
     Active Substance: CLOFARABINE
     Route: 042
     Dates: start: 20150409, end: 20150412
  12. CYCLOPHOSPHAMIDE. [Suspect]
     Active Substance: CYCLOPHOSPHAMIDE
     Indication: ACUTE LYMPHOCYTIC LEUKAEMIA
     Route: 042
     Dates: start: 20150209, end: 20150212
  13. CYTARABINE. [Suspect]
     Active Substance: CYTARABINE
     Indication: ACUTE LYMPHOCYTIC LEUKAEMIA
     Route: 042
     Dates: start: 20150306, end: 20150308
  14. VINCRISTINE [Suspect]
     Active Substance: VINCRISTINE
     Indication: ACUTE LYMPHOCYTIC LEUKAEMIA
     Route: 042
     Dates: start: 20150216, end: 20150216
  15. NEULASTA [Suspect]
     Active Substance: PEGFILGRASTIM
     Indication: ACUTE LYMPHOCYTIC LEUKAEMIA
     Route: 058
     Dates: start: 20150214, end: 20150214
  16. METHOTREXATE. [Suspect]
     Active Substance: METHOTREXATE
     Indication: ACUTE LYMPHOCYTIC LEUKAEMIA
     Route: 042
     Dates: start: 20150304, end: 20150304
  17. INOTUZUMAB OZOGAMICIN [Suspect]
     Active Substance: INOTUZUMAB OZOGAMICIN
     Indication: ACUTE LYMPHOCYTIC LEUKAEMIA
     Dosage: DAY:3
     Route: 042
     Dates: start: 20150211, end: 20150211
  18. DEXAMETHASONE. [Suspect]
     Active Substance: DEXAMETHASONE
     Indication: ACUTE LYMPHOCYTIC LEUKAEMIA
     Route: 042
     Dates: start: 20150209, end: 20150212
  19. METHOTREXATE. [Suspect]
     Active Substance: METHOTREXATE
     Indication: ACUTE LYMPHOCYTIC LEUKAEMIA
     Route: 037
     Dates: start: 20150306, end: 20150306
  20. ACTIGALL [Concomitant]
     Active Substance: URSODIOL
     Indication: PROPHYLAXIS
     Dates: start: 20150409

REACTIONS (1)
  - Hepatobiliary disease [Unknown]

NARRATIVE: CASE EVENT DATE: 20150428
